FAERS Safety Report 7001168-3 (Version None)
Quarter: 2010Q3

REPORT INFORMATION
  Report Type: 
  Country: None (occurrence: None)
  Receive Date: 20100920
  Receipt Date: 20100503
  Transmission Date: 20110219
  Serious: Yes (Other)
  Sender: FDA-Public Use
  Company Number: US-ASTRAZENECA-2007UW12101

PATIENT
  Age: 51 Year
  Sex: Female
  Weight: 102.1 kg

DRUGS (42)
  1. SEROQUEL [Suspect]
     Indication: DEPRESSION
     Dosage: 50MG-100MG
     Route: 048
     Dates: start: 19870101
  2. SEROQUEL [Suspect]
     Indication: MAJOR DEPRESSION
     Dosage: 50MG-100MG
     Route: 048
     Dates: start: 19870101
  3. SEROQUEL [Suspect]
     Indication: ANXIETY DISORDER
     Dosage: 50MG-100MG
     Route: 048
     Dates: start: 19870101
  4. SEROQUEL [Suspect]
     Indication: AFFECTIVE DISORDER
     Dosage: 50MG-100MG
     Route: 048
     Dates: start: 19870101
  5. SEROQUEL [Suspect]
     Route: 048
     Dates: start: 19990101, end: 20030501
  6. SEROQUEL [Suspect]
     Route: 048
     Dates: start: 19990101, end: 20030501
  7. SEROQUEL [Suspect]
     Route: 048
     Dates: start: 19990101, end: 20030501
  8. SEROQUEL [Suspect]
     Route: 048
     Dates: start: 19990101, end: 20030501
  9. SEROQUEL [Suspect]
     Dosage: 50 - 200 MG DAILY
     Route: 048
     Dates: start: 20010711
  10. SEROQUEL [Suspect]
     Dosage: 50 - 200 MG DAILY
     Route: 048
     Dates: start: 20010711
  11. SEROQUEL [Suspect]
     Dosage: 50 - 200 MG DAILY
     Route: 048
     Dates: start: 20010711
  12. SEROQUEL [Suspect]
     Dosage: 50 - 200 MG DAILY
     Route: 048
     Dates: start: 20010711
  13. WELLBUTRIN SR [Concomitant]
     Dosage: 100 - 300 MG DAILY
     Route: 048
     Dates: start: 19990428
  14. LITHIUM CARBONATE [Concomitant]
     Route: 048
     Dates: start: 20000101
  15. LITHOBID [Concomitant]
     Route: 048
     Dates: start: 20000101
  16. CELEXA [Concomitant]
     Route: 048
     Dates: start: 20010622
  17. TRIMETHOBENZAMIDE HCL [Concomitant]
     Dosage: 3 - 4 TIMES  DAILY AS NEEDED
     Route: 048
     Dates: start: 20010629
  18. PREVACID [Concomitant]
     Dosage: 15 - 30 MG DAILY
     Route: 048
     Dates: start: 20010226
  19. LORAZEPAM [Concomitant]
     Dosage: 0.5 - 3 MG DAILY
     Route: 048
     Dates: start: 20010725
  20. RISPERDAL [Concomitant]
     Indication: DEPRESSION
     Route: 048
     Dates: start: 20010725, end: 20010827
  21. RISPERDAL [Concomitant]
     Indication: ANXIETY DISORDER
     Route: 048
     Dates: start: 20010725, end: 20010827
  22. RISPERDAL [Concomitant]
     Indication: AFFECTIVE DISORDER
     Route: 048
     Dates: start: 20010725, end: 20010827
  23. ZYPREXA [Concomitant]
     Indication: MAJOR DEPRESSION
     Dosage: 5 - 10 MG AT NIGHT
     Route: 048
     Dates: start: 19870101
  24. ZYPREXA [Concomitant]
     Indication: DEPRESSION
     Dosage: 5 - 10 MG AT NIGHT
     Route: 048
     Dates: start: 19870101
  25. ZYPREXA [Concomitant]
     Indication: ANXIETY DISORDER
     Dosage: 5 - 10 MG AT NIGHT
     Route: 048
     Dates: start: 19870101
  26. ZYPREXA [Concomitant]
     Indication: AFFECTIVE DISORDER
     Dosage: 5 - 10 MG AT NIGHT
     Route: 048
     Dates: start: 19870101
  27. EFFEXOR XR [Concomitant]
     Dosage: 37.5 - 150 MG DAILY
     Route: 048
     Dates: start: 20010323, end: 20040101
  28. ABILIFY [Concomitant]
     Dates: start: 20090101
  29. CYMBALTA [Concomitant]
     Dates: start: 20050101, end: 20070101
  30. CLONAZEPAM [Concomitant]
     Dates: start: 19990101
  31. NORTRIPTYLINE HCL [Concomitant]
     Dates: start: 20020101
  32. PROZAC [Concomitant]
     Dates: start: 20020101, end: 20080101
  33. REMERON [Concomitant]
     Dates: start: 20010101
  34. SERZONE [Concomitant]
     Dates: start: 19980101
  35. TRAZODONE HCL [Concomitant]
     Dates: start: 19990101
  36. WELLBUTRIN [Concomitant]
     Dosage: 100MG-150MG
     Dates: start: 19990101
  37. LIPITOR [Concomitant]
     Indication: BLOOD CHOLESTEROL INCREASED
  38. LIPITOR [Concomitant]
     Indication: HYPERLIPIDAEMIA
  39. CRESTOR [Concomitant]
     Indication: BLOOD CHOLESTEROL INCREASED
  40. CRESTOR [Concomitant]
     Indication: HYPERLIPIDAEMIA
  41. ZOCOR [Concomitant]
     Indication: BLOOD CHOLESTEROL INCREASED
  42. ZOCOR [Concomitant]
     Indication: HYPERLIPIDAEMIA

REACTIONS (7)
  - BLOOD CHOLESTEROL INCREASED [None]
  - BLOOD TRIGLYCERIDES INCREASED [None]
  - HYPERLIPIDAEMIA [None]
  - OBESITY [None]
  - SLEEP APNOEA SYNDROME [None]
  - TARDIVE DYSKINESIA [None]
  - TYPE 2 DIABETES MELLITUS [None]
